FAERS Safety Report 8454672-5 (Version None)
Quarter: 2012Q2

REPORT INFORMATION
  Report Type: 
  Country: None (occurrence: None)
  Receive Date: 20120615
  Receipt Date: 20120615
  Transmission Date: 20120825
  Serious: Yes (Life-Threatening, Disabling, Other)
  Sender: FDA-Public Use
  Company Number: None

PATIENT
  Age: 38 Year
  Sex: Female
  Weight: 61.2356 kg

DRUGS (2)
  1. PROGRAF [Suspect]
     Indication: PROPHYLAXIS AGAINST TRANSPLANT REJECTION
     Dosage: 2 MG ONCE DAY
     Dates: start: 20051201, end: 20110601
  2. PROGRAF [Suspect]
     Indication: TRANSPLANT
     Dosage: 2 MG ONCE DAY
     Dates: start: 20051201, end: 20110601

REACTIONS (3)
  - NEPHROPATHY TOXIC [None]
  - RENAL FAILURE [None]
  - HYPERTENSION [None]
